FAERS Safety Report 7213192-6 (Version None)
Quarter: 2010Q4

REPORT INFORMATION
  Report Type: 
  Country: None (occurrence: None)
  Receive Date: 20101227
  Receipt Date: 20101214
  Transmission Date: 20110411
  Serious: Yes (Other)
  Sender: FDA-Public Use
  Company Number: 023830

PATIENT
  Sex: Male
  Weight: 13.2 kg

DRUGS (4)
  1. KEPPRA [Suspect]
     Indication: EPILEPSY
     Dosage: (2000 MG TRANSPLACENTAL), (1500 MG BID TRANSPLACENTAL)
     Route: 064
     Dates: end: 20081101
  2. PRENATAL VITAMINS /01549301/ [Concomitant]
  3. FOLIC ACID [Concomitant]
  4. LAMOTRIGINE [Concomitant]

REACTIONS (2)
  - MATERNAL DRUGS AFFECTING FOETUS [None]
  - SPEECH DISORDER DEVELOPMENTAL [None]
